FAERS Safety Report 7549555-9 (Version None)
Quarter: 2011Q2

REPORT INFORMATION
  Report Type: 
  Country: None (occurrence: None)
  Receive Date: 20110615
  Receipt Date: 20110526
  Transmission Date: 20111010
  Serious: Yes (Hospitalization)
  Sender: FDA-Public Use
  Company Number: A0865957A

PATIENT
  Age: 64 Year
  Sex: Male
  Weight: 68.2 kg

DRUGS (5)
  1. LISINOPRIL [Concomitant]
  2. HYDROCHLOROTHIAZIDE [Concomitant]
  3. AVANDIA [Suspect]
     Dosage: 8MG PER DAY
     Route: 048
     Dates: start: 19990101, end: 20080301
  4. ACIPHEX [Concomitant]
  5. AMARYL [Concomitant]

REACTIONS (1)
  - MYOCARDIAL INFARCTION [None]
